FAERS Safety Report 7945099-0 (Version None)
Quarter: 2011Q4

REPORT INFORMATION
  Report Type: 
  Country: None (occurrence: None)
  Receive Date: 20111129
  Receipt Date: 20111129
  Transmission Date: 20120403
  Serious: Yes (Hospitalization)
  Sender: FDA-Public Use
  Company Number: None

PATIENT
  Age: 33 Year
  Sex: Female
  Weight: 52.163 kg

DRUGS (1)
  1. PARAGARD T 380A [Suspect]
     Indication: CONTRACEPTION
     Dates: start: 20110824, end: 20111209

REACTIONS (15)
  - FUNGAL INFECTION [None]
  - COMPLICATION OF DEVICE REMOVAL [None]
  - ABDOMINAL PAIN [None]
  - DEVICE DISLOCATION [None]
  - BACK PAIN [None]
  - METRORRHAGIA [None]
  - DYSMENORRHOEA [None]
  - FATIGUE [None]
  - OLIGOMENORRHOEA [None]
  - URTICARIA [None]
  - DIZZINESS [None]
  - LOSS OF LIBIDO [None]
  - VAGINAL INFECTION [None]
  - GENITAL DISCHARGE [None]
  - DYSPAREUNIA [None]
